FAERS Safety Report 16513725 (Version 1)
Quarter: 2019Q3

REPORT INFORMATION
  Report Type: Spontaneous
  Country: NL (occurrence: DE)
  Receive Date: 20190702
  Receipt Date: 20190702
  Transmission Date: 20191004
  Serious: Yes (Other)
  Sender: FDA-Public Use
  Company Number: DE-FRESENIUS KABI-FK201907148

PATIENT
  Age: 33 Year
  Sex: Male

DRUGS (5)
  1. VALPROATE SODIUM. [Interacting]
     Active Substance: VALPROATE SODIUM
     Indication: EPILEPSY
     Dosage: 300 MG-0-300 MG
     Route: 065
  2. VANCOMYCIN (MANUFACTURER UNKNOWN) [Suspect]
     Active Substance: VANCOMYCIN
     Indication: ORCHITIS NONINFECTIVE
     Route: 065
  3. CIPROFLOXACIN (MANUFACTURER UNKNOWN) [Interacting]
     Active Substance: CIPROFLOXACIN
     Indication: ORCHITIS NONINFECTIVE
     Route: 065
  4. AMOXICILLIN SODIUM/CLAVULANATE POTASSIUM [Interacting]
     Active Substance: AMOXICILLIN\CLAVULANATE POTASSIUM
     Indication: ORCHITIS NONINFECTIVE
     Route: 065
  5. SULTIAME [Concomitant]
     Active Substance: SULTHIAME
     Indication: EPILEPSY
     Route: 065

REACTIONS (4)
  - Drug interaction [Unknown]
  - Seizure [Unknown]
  - Product use in unapproved indication [Unknown]
  - Therapeutic product effect decreased [Unknown]
